FAERS Safety Report 10764801 (Version 1)
Quarter: 2015Q1

REPORT INFORMATION
  Report Type: Spontaneous
  Country: US (occurrence: None)
  Receive Date: 20150204
  Receipt Date: 20150204
  Transmission Date: 20150721
  Serious: No
  Sender: FDA-Public Use
  Company Number: None

PATIENT

DRUGS (2)
  1. ONDANSETRON [Suspect]
     Active Substance: ONDANSETRON
     Dosage: DOSAGE FORM: INJECTABLE, ADM ROUTE: INTRAVENOUS INFUSION, STRENGTH 40 MG/20 ML,CONTAINER TYPE: VIAL, CONAINER SIZE: 20 ML
     Route: 042
  2. ACYCLOVIR SODIUM. [Suspect]
     Active Substance: ACYCLOVIR SODIUM
     Dosage: DOSAGE FORM: INJECTABLE, ADM ROUTE: INTRAVENOUS INFUSION, STRENGTH 1,000 MG/20 ML,CONTAINER TYPE: VIAL, CONAINER SIZE: 20 ML
     Route: 042

REACTIONS (1)
  - Product container issue [None]
